FAERS Safety Report 21175621 (Version 1)
Quarter: 2022Q3

REPORT INFORMATION
  Report Type: Other
  Country: US (occurrence: None)
  Receive Date: 20220805
  Receipt Date: 20220805
  Transmission Date: 20221026
  Serious: Yes (Hospitalization, Other)
  Sender: FDA-Public Use
  Company Number: US-ROCHE-3150770

PATIENT
  Sex: Male

DRUGS (1)
  1. HEMLIBRA [Suspect]
     Active Substance: EMICIZUMAB-KXWH
     Indication: Coagulation factor deficiency
     Dosage: INJECT 1ML (150MG) SUBCUTANEOUSLY EVERY 7 DAY(S)
     Route: 058

REACTIONS (3)
  - Internal haemorrhage [Unknown]
  - Haemorrhage [Unknown]
  - Off label use [Unknown]
